FAERS Safety Report 5161578-6 (Version None)
Quarter: 2006Q4

REPORT INFORMATION
  Report Type: 
  Country: None (occurrence: None)
  Receive Date: 20061130
  Receipt Date: 20060914
  Transmission Date: 20070319
  Serious: No
  Sender: FDA-Public Use
  Company Number: US-GLAXOSMITHKLINE-A0620176A

PATIENT
  Sex: Female

DRUGS (3)
  1. WELLBUTRIN XL [Suspect]
     Indication: FATIGUE
     Dosage: 300MG PER DAY
     Route: 048
  2. ZETIA [Concomitant]
  3. PRAVACHOL [Concomitant]

REACTIONS (4)
  - ANXIETY [None]
  - INSOMNIA [None]
  - PALPITATIONS [None]
  - TREMOR [None]
